FAERS Safety Report 9096383 (Version 1)
Quarter: 2013Q1

REPORT INFORMATION
  Report Type: Spontaneous
  Country: US (occurrence: None)
  Receive Date: 20130122
  Receipt Date: 20130122
  Transmission Date: 20140127
  Serious: Yes (Death)
  Sender: FDA-Public Use
  Company Number: 2013POI058000067

PATIENT
  Age: 60 Year
  Sex: Female

DRUGS (13)
  1. OXYCODONE HCL [Suspect]
     Route: 048
     Dates: start: 2011
  2. TIZANIDINE [Suspect]
     Route: 048
     Dates: start: 2011
  3. AMLODIPINE [Suspect]
     Route: 048
     Dates: start: 2011
  4. ARIPIPRAZOLE [Suspect]
     Route: 048
     Dates: start: 2011
  5. HYDROCODONE [Suspect]
     Route: 048
     Dates: start: 2011
  6. FLUOXETINE [Suspect]
     Route: 048
     Dates: start: 2011
  7. AMITRIPTYLINE [Suspect]
     Route: 048
     Dates: start: 2011
  8. ZOLPIDEM [Suspect]
     Route: 048
     Dates: start: 2011
  9. HYOSCYAMINE [Suspect]
     Route: 048
     Dates: start: 2011
  10. HYDROCHLOROTHIAZIDE [Suspect]
     Route: 048
     Dates: start: 2011
  11. SIMVASTATIN [Suspect]
     Route: 048
     Dates: start: 2011
  12. SUMATRIPTAN [Suspect]
     Route: 048
     Dates: start: 2011
  13. ACETAMINOPHEN [Suspect]
     Route: 048
     Dates: start: 2011

REACTIONS (3)
  - Cardiac arrest [None]
  - Respiratory arrest [None]
  - Completed suicide [None]
